FAERS Safety Report 4360953-7 (Version None)
Quarter: 2004Q2

REPORT INFORMATION
  Report Type: 
  Country: None (occurrence: None)
  Receive Date: 20040517
  Receipt Date: 20040504
  Transmission Date: 20050107
  Serious: Yes (Hospitalization, Other)
  Sender: FDA-Public Use
  Company Number: 2004030263

PATIENT
  Age: 59 Year
  Sex: Male

DRUGS (12)
  1. DIFLUCAN [Suspect]
     Indication: FUNGAL INFECTION
     Dosage: 300 MG (2 MG/ML, 1 IN 1 D), INTRAVENOUS
     Route: 042
     Dates: start: 20040403, end: 20040415
  2. ACETAMINOPHEN [Suspect]
     Indication: PYREXIA
     Dosage: 4 GRAM (1 IN 1 D), INTRAVENOUS
     Route: 042
     Dates: start: 20040328, end: 20040415
  3. AMIODARONE HCL [Suspect]
     Indication: SUPRAVENTRICULAR TACHYCARDIA
     Dosage: 200 MG (200 MG, 1 IN 1D), ORAL
     Route: 048
     Dates: start: 20040401, end: 20040415
  4. LEPIRUDIN (LEPIRUDIN) [Suspect]
     Indication: HEPARIN-INDUCED THROMBOCYTOPENIA
     Dosage: 7.2 MG (1 IN 1 D), INTRAVENOUS
     Route: 042
     Dates: start: 20040408
  5. HEPARIN [Suspect]
     Indication: ILL-DEFINED DISORDER
  6. NITRAZEPAM [Concomitant]
  7. TIENAM (CILASTATIN, IMIPENEM) [Concomitant]
  8. PREDNISONE [Concomitant]
  9. FENTANYL [Concomitant]
  10. SUCRALFATE [Concomitant]
  11. FOLIC ACID [Concomitant]
  12. FUROSEMIDE [Concomitant]

REACTIONS (6)
  - ACUTE RESPIRATORY FAILURE [None]
  - HAEMODIALYSIS [None]
  - HEPARIN-INDUCED THROMBOCYTOPENIA [None]
  - HEPATITIS [None]
  - HEPATOCELLULAR DAMAGE [None]
  - RENAL FAILURE ACUTE [None]
